FAERS Safety Report 4290049-4 (Version None)
Quarter: 2004Q1

REPORT INFORMATION
  Report Type: 
  Country: None (occurrence: None)
  Receive Date: 20040206
  Receipt Date: 20040129
  Transmission Date: 20041129
  Serious: Yes (Other)
  Sender: FDA-Public Use
  Company Number: 2004-01-2132

PATIENT
  Sex: Female

DRUGS (2)
  1. PROVENTIL [Suspect]
     Indication: ASTHMA
     Dosage: 100 MCG ORAL AER INH
     Route: 055
     Dates: start: 20021012, end: 20031008
  2. QVAR AUTOHALER HFA (BECLOMETHASONE DIPROPIONATE) [Concomitant]

REACTIONS (1)
  - INCREASED TENDENCY TO BRUISE [None]
